FAERS Safety Report 10034836 (Version 2)
Quarter: 2014Q2

REPORT INFORMATION
  Report Type: Spontaneous
  Country: IN (occurrence: None)
  Receive Date: 20140321
  Receipt Date: 20140401
  Transmission Date: 20141212
  Serious: Yes (Hospitalization, Other)
  Sender: FDA-Public Use
  Company Number: AUR-APL-2014-03072

PATIENT
  Age: 60 Year
  Sex: Female

DRUGS (2)
  1. SEMISODIUM VALPROATE [Suspect]
     Indication: PSYCHOTIC DISORDER
  2. OLANZAPINE [Suspect]
     Indication: PSYCHOTIC DISORDER

REACTIONS (5)
  - Neuroleptic malignant syndrome [None]
  - Anaemia [None]
  - Hyponatraemia [None]
  - Generalised tonic-clonic seizure [None]
  - Toxicity to various agents [None]
